FAERS Safety Report 14092814 (Version 1)
Quarter: 2017Q4

REPORT INFORMATION
  Report Type: Spontaneous
  Country: US (occurrence: US)
  Receive Date: 20171016
  Receipt Date: 20171016
  Transmission Date: 20180321
  Serious: Yes (Hospitalization, Other)
  Sender: FDA-Public Use
  Company Number: US-GLAXOSMITHKLINE-US2017156388

PATIENT
  Age: 36 Year
  Sex: Female

DRUGS (5)
  1. ARMOUR THYROID [Concomitant]
     Active Substance: THYROID, PORCINE
     Indication: THYROID DISORDER
     Dosage: 120 MG, QD
  2. TRANSDERM SCOP [Suspect]
     Active Substance: SCOPOLAMINE
     Indication: PROCEDURAL NAUSEA
     Dosage: UNK
     Route: 048
     Dates: start: 20171006, end: 20171007
  3. IBUPROFEN. [Concomitant]
     Active Substance: IBUPROFEN
     Indication: PROCEDURAL PAIN
     Dosage: UNK
  4. ZOFRAN [Concomitant]
     Active Substance: ONDANSETRON HYDROCHLORIDE
     Indication: NAUSEA
     Dosage: UNK
  5. CYTOMEL [Concomitant]
     Active Substance: LIOTHYRONINE SODIUM
     Indication: THYROID DISORDER
     Dosage: UNK, QD, 15 MCG

REACTIONS (19)
  - Urticaria [Recovering/Resolving]
  - Headache [Recovering/Resolving]
  - Hyperhidrosis [Recovering/Resolving]
  - Dyspnoea [Recovering/Resolving]
  - Vertigo [Recovering/Resolving]
  - Adverse reaction [Recovering/Resolving]
  - Hallucination [Recovering/Resolving]
  - Paraesthesia [Recovering/Resolving]
  - Dysuria [Recovering/Resolving]
  - Seizure [Recovering/Resolving]
  - Shock [Recovering/Resolving]
  - Hypoaesthesia [Recovering/Resolving]
  - Feeling hot [Recovering/Resolving]
  - Blindness transient [Recovering/Resolving]
  - Burning sensation [Recovering/Resolving]
  - Dry mouth [Recovering/Resolving]
  - Blood pressure fluctuation [Recovering/Resolving]
  - Erythema [Recovering/Resolving]
  - Emergency care [Recovering/Resolving]

NARRATIVE: CASE EVENT DATE: 20171006
